FAERS Safety Report 15451505 (Version 1)
Quarter: 2018Q3

REPORT INFORMATION
  Report Type: Spontaneous
  Country: US (occurrence: US)
  Receive Date: 20180927
  Receipt Date: 20180927
  Transmission Date: 20181010
  Serious: Yes (Disabling)
  Sender: FDA-Public Use
  Company Number: None

PATIENT
  Age: 34 Year
  Sex: Female
  Weight: 103.05 kg

DRUGS (6)
  1. CALCUIM [Concomitant]
  2. VITAMIN D [Concomitant]
     Active Substance: CHOLECALCIFEROL
  3. BIOTIN [Concomitant]
     Active Substance: BIOTIN
  4. BARIATRIC VITAMINS [Concomitant]
  5. VITAMIN B12 [Concomitant]
     Active Substance: CYANOCOBALAMIN
  6. LEVOTHYROXINE. [Suspect]
     Active Substance: LEVOTHYROXINE
     Indication: HYPOTHYROIDISM
     Dosage: ?          QUANTITY:1 DF DOSAGE FORM;?
     Route: 048
     Dates: start: 20160701, end: 20180423

REACTIONS (5)
  - Insomnia [None]
  - Memory impairment [None]
  - Weight increased [None]
  - Thyroid hormones increased [None]
  - Peripheral swelling [None]

NARRATIVE: CASE EVENT DATE: 20160701
